FAERS Safety Report 7578220-7 (Version None)
Quarter: 2011Q2

REPORT INFORMATION
  Report Type: 
  Country: None (occurrence: None)
  Receive Date: 20110628
  Receipt Date: 20110609
  Transmission Date: 20111010
  Serious: Yes (Other)
  Sender: FDA-Public Use
  Company Number: B0726935A

PATIENT
  Age: 43 Year
  Sex: Male

DRUGS (1)
  1. BUPROPION HCL [Suspect]
     Indication: SMOKING CESSATION THERAPY
     Dosage: 150MG PER DAY
     Route: 065

REACTIONS (2)
  - PSORIASIS [None]
  - DRUG ERUPTION [None]
